FAERS Safety Report 5341644-2 (Version None)
Quarter: 2007Q2

REPORT INFORMATION
  Report Type: 
  Country: None (occurrence: None)
  Receive Date: 20070530
  Receipt Date: 20070518
  Transmission Date: 20071010
  Serious: Yes (Hospitalization)
  Sender: FDA-Public Use
  Company Number: L07-JPN-02148-01

PATIENT
  Age: 32 Year
  Sex: Male

DRUGS (2)
  1. CARBAMAZEPINE [Suspect]
     Indication: NEURALGIA
     Dosage: 600 MG QD PO
     Route: 048
  2. CARBAMAZEPINE [Suspect]
     Indication: NEURALGIA
     Dosage: 200 MG QD PO
     Route: 048

REACTIONS (2)
  - NERVOUS SYSTEM DISORDER [None]
  - NUCLEAR MAGNETIC RESONANCE IMAGING BRAIN ABNORMAL [None]
